FAERS Safety Report 18717571 (Version 1)
Quarter: 2021Q1

REPORT INFORMATION
  Report Type: Spontaneous
  Country: FR (occurrence: FR)
  Receive Date: 20210108
  Receipt Date: 20210108
  Transmission Date: 20210419
  Serious: Yes (Hospitalization, Other)
  Sender: FDA-Public Use
  Company Number: FR-VIIV HEALTHCARE LIMITED-FR2021000199

PATIENT
  Age: 23 Year
  Sex: Female
  Weight: 41 kg

DRUGS (3)
  1. ISONIAZIDE [Suspect]
     Active Substance: ISONIAZID
     Indication: PULMONARY TUBERCULOSIS
     Dosage: UNK
     Route: 048
     Dates: start: 202007, end: 20201202
  2. CELSENTRI [Suspect]
     Active Substance: MARAVIROC
     Indication: MENINGITIS
     Dosage: UNK
     Route: 048
     Dates: start: 20201117
  3. RIFABUTINE [Suspect]
     Active Substance: RIFABUTIN
     Indication: PULMONARY TUBERCULOSIS
     Dosage: 150 MG
     Route: 048
     Dates: start: 20201119, end: 20201202

REACTIONS (2)
  - Pancytopenia [Recovered/Resolved]
  - Neutropenia [Recovered/Resolved]

NARRATIVE: CASE EVENT DATE: 20201123
